FAERS Safety Report 4552762-0 (Version None)
Quarter: 2005Q1

REPORT INFORMATION
  Report Type: 
  Country: None (occurrence: None)
  Receive Date: 20050114
  Receipt Date: 20050105
  Transmission Date: 20050727
  Serious: Yes (Death)
  Sender: FDA-Public Use
  Company Number: BE-JNJFOC-20050101420

PATIENT
  Sex: Female

DRUGS (11)
  1. PROPULSID [Suspect]
     Indication: DRUG USE FOR UNKNOWN INDICATION
     Route: 049
     Dates: start: 20030401
  2. ISOTEN [Concomitant]
     Route: 049
  3. FUROSEMIDE [Concomitant]
     Route: 049
  4. CAPTOPRIL [Concomitant]
     Route: 049
  5. LANTUS [Concomitant]
     Route: 058
  6. HUMALOG [Concomitant]
     Route: 049
  7. SPIRONOLACTONE [Concomitant]
     Route: 049
  8. LIPITOR [Concomitant]
     Indication: HYPERLIPIDAEMIA
     Route: 049
  9. ASAFLOW [Concomitant]
     Route: 049
  10. CORVATARD [Concomitant]
     Route: 049
  11. ZANTAC [Concomitant]
     Route: 049

REACTIONS (1)
  - SUDDEN DEATH [None]
